FAERS Safety Report 5913460-1 (Version None)
Quarter: 2008Q4

REPORT INFORMATION
  Report Type: 
  Country: None (occurrence: None)
  Receive Date: 20081008
  Receipt Date: 20081008
  Transmission Date: 20090506
  Serious: No
  Sender: FDA-Public Use
  Company Number: None

PATIENT
  Sex: Female
  Weight: 100.2449 kg

DRUGS (1)
  1. LISINOPRIL [Suspect]
     Indication: HYPERTENSION
     Dosage: 20MG 1 TAB DAILY PO
     Route: 048
     Dates: start: 20080826, end: 20080905

REACTIONS (4)
  - COUGH [None]
  - DRY MOUTH [None]
  - PHARYNGEAL OEDEMA [None]
  - PRURITUS [None]
